FAERS Safety Report 4759103-4 (Version None)
Quarter: 2005Q3

REPORT INFORMATION
  Report Type: 
  Country: None (occurrence: None)
  Receive Date: 20050831
  Receipt Date: 20050829
  Transmission Date: 20060218
  Serious: Yes (Hospitalization)
  Sender: FDA-Public Use
  Company Number: THQ2005A00351

PATIENT
  Age: 65 Year

DRUGS (3)
  1. LEUPROLIDE ACETATE [Suspect]
     Dosage: 22.5 MG (22.5 MG, 1 IN 3 M) INTRAMUSCULAR
     Route: 030
     Dates: start: 20040904, end: 20050315
  2. ZOLEDRONIC ACID [Suspect]
     Dosage: 4 MG/100 ML INTRAVENOUS
     Route: 042
     Dates: start: 20040915, end: 20050315
  3. GEZOR [Concomitant]

REACTIONS (2)
  - CHEST PAIN [None]
  - PERICARDIAL EFFUSION [None]
